FAERS Safety Report 8214817-9 (Version None)
Quarter: 2012Q1

REPORT INFORMATION
  Report Type: 
  Country: None (occurrence: None)
  Receive Date: 20120316
  Receipt Date: 20120308
  Transmission Date: 20120608
  Serious: Yes (Other)
  Sender: FDA-Public Use
  Company Number: GB-JNJFOC-20120305688

PATIENT
  Sex: Female

DRUGS (2)
  1. STELARA [Suspect]
     Indication: PSORIASIS
     Route: 058
     Dates: start: 20120201
  2. STELARA [Suspect]
     Route: 058
     Dates: start: 20120308

REACTIONS (1)
  - VISUAL ACUITY REDUCED [None]
